FAERS Safety Report 4878050-0 (Version None)
Quarter: 2005Q4

REPORT INFORMATION
  Report Type: 
  Country: None (occurrence: None)
  Receive Date: 20051206
  Receipt Date: 20050831
  Transmission Date: 20060501
  Serious: No
  Sender: FDA-Public Use
  Company Number: USA0509107671

PATIENT
  Age: 52 Year
  Sex: Female
  Weight: 140 kg

DRUGS (3)
  1. CYMBALTA [Suspect]
     Dosage: 60 MG DAY
  2. DILAUDID [Concomitant]
  3. SYNTHROID [Concomitant]

REACTIONS (5)
  - AGITATION [None]
  - ANGER [None]
  - ANXIETY [None]
  - HOMICIDAL IDEATION [None]
  - IRRITABILITY [None]
